FAERS Safety Report 19028050 (Version 1)
Quarter: 2021Q1

REPORT INFORMATION
  Report Type: Spontaneous
  Country: US (occurrence: US)
  Receive Date: 20210318
  Receipt Date: 20210318
  Transmission Date: 20210420
  Serious: No
  Sender: FDA-Public Use
  Company Number: US-CATALYST PHARMACEUTICALS, INC-2021CAT00009

PATIENT
  Sex: Female
  Weight: 52.16 kg

DRUGS (18)
  1. FIRDAPSE [Suspect]
     Active Substance: AMIFAMPRIDINE PHOSPHATE
     Dosage: 10 MG, 2X/DAY (WHEN SHE DOESN^T NEED IT 3X/DAY)
     Route: 048
  2. OMEGA 3 [Concomitant]
     Active Substance: OMEGA-3 FATTY ACIDS
  3. KETOCONAZOLE. [Concomitant]
     Active Substance: KETOCONAZOLE
  4. VITAMIN C [Concomitant]
     Active Substance: ASCORBIC ACID
  5. FIRDAPSE [Suspect]
     Active Substance: AMIFAMPRIDINE PHOSPHATE
     Indication: MYASTHENIC SYNDROME
     Dosage: 10 MG, 3X/DAY
     Route: 048
     Dates: start: 20190222
  6. DAILY MULTIVITAMIN [Concomitant]
     Active Substance: VITAMINS
  7. IMURAN [Concomitant]
     Active Substance: AZATHIOPRINE
  8. TURMERIC [Concomitant]
     Active Substance: HERBALS\TURMERIC
  9. SLOW FE IRON [Concomitant]
  10. PROBIOTIC [Concomitant]
     Active Substance: PROBIOTICS NOS
  11. TYLENOL [Concomitant]
     Active Substance: ACETAMINOPHEN
     Dosage: UNK, AS NEEDED
  12. IVIG [Concomitant]
     Active Substance: HUMAN IMMUNOGLOBULIN G
  13. MESTINON [Concomitant]
     Active Substance: PYRIDOSTIGMINE BROMIDE
  14. CALCIUM CITRATE WITH VITAMIN D3 [Concomitant]
     Active Substance: CALCIUM CITRATE\CHOLECALCIFEROL
  15. PREDNISONE. [Concomitant]
     Active Substance: PREDNISONE
  16. VITAMIN B [Concomitant]
     Active Substance: VITAMIN B
  17. VITAMIN E [Concomitant]
     Active Substance: .ALPHA.-TOCOPHEROL
  18. BENADRYL [Concomitant]
     Active Substance: DIPHENHYDRAMINE HYDROCHLORIDE
     Dosage: UNK, AS NEEDED

REACTIONS (3)
  - Musculoskeletal stiffness [Not Recovered/Not Resolved]
  - Trigger finger [Not Recovered/Not Resolved]
  - Intentional product use issue [Not Recovered/Not Resolved]
